FAERS Safety Report 21844206 (Version 1)
Quarter: 2023Q1

REPORT INFORMATION
  Report Type: Spontaneous
  Country: US (occurrence: US)
  Receive Date: 20230110
  Receipt Date: 20230110
  Transmission Date: 20230418
  Serious: Yes (Other)
  Sender: FDA-Public Use
  Company Number: US-JNJFOC-20230103857

PATIENT
  Age: 81 Year
  Sex: Female
  Weight: 74.456 kg

DRUGS (3)
  1. XARELTO [Interacting]
     Active Substance: RIVAROXABAN
     Indication: Cerebrovascular accident prophylaxis
     Route: 048
     Dates: start: 202208
  2. XARELTO [Interacting]
     Active Substance: RIVAROXABAN
     Indication: Atrial fibrillation
  3. METOPROLOL [Concomitant]
     Active Substance: METOPROLOL

REACTIONS (8)
  - Cataract [Unknown]
  - Oral discomfort [Not Recovered/Not Resolved]
  - Swollen tongue [Not Recovered/Not Resolved]
  - Tongue exfoliation [Not Recovered/Not Resolved]
  - Drug interaction [Not Recovered/Not Resolved]
  - Product label issue [Not Recovered/Not Resolved]
  - Gastrooesophageal reflux disease [Unknown]
  - Alopecia [Unknown]

NARRATIVE: CASE EVENT DATE: 20220101
